FAERS Safety Report 9824726 (Version 2)
Quarter: 2014Q2

REPORT INFORMATION
  Report Type: Spontaneous
  Country: CO (occurrence: CO)
  Receive Date: 20140117
  Receipt Date: 20140515
  Transmission Date: 20141212
  Serious: Yes (Death)
  Sender: FDA-Public Use
  Company Number: CO-BEH-2014040117

PATIENT
  Age: 24 Year
  Sex: Female

DRUGS (2)
  1. SANDOGLOBULIN [Suspect]
     Indication: ANTIPHOSPHOLIPID SYNDROME
  2. METHYLPREDNISOLONE [Suspect]
     Indication: ANTIPHOSPHOLIPID SYNDROME

REACTIONS (1)
  - Drug ineffective for unapproved indication [Fatal]
